FAERS Safety Report 19132059 (Version 1)
Quarter: 2021Q2

REPORT INFORMATION
  Report Type: Spontaneous
  Country: PL (occurrence: PL)
  Receive Date: 20210413
  Receipt Date: 20210413
  Transmission Date: 20210717
  Serious: Yes (Other)
  Sender: FDA-Public Use
  Company Number: PL-TEVA-2021-PL-1899534

PATIENT
  Age: 68 Year
  Weight: 80 kg

DRUGS (3)
  1. FLUOROURACIL. [Suspect]
     Active Substance: FLUOROURACIL
     Indication: COLON CANCER
     Dosage: DOSE: 708 ? BOLUS; 1062 ? DRIP; UNSPECIFIED UNITS
     Route: 042
     Dates: start: 20170905, end: 20180320
  2. OXALIPLATIN. [Suspect]
     Active Substance: OXALIPLATIN
     Indication: COLON CANCER
     Dosage: DOSE: 150; UNSPECIFIED UNITS
     Route: 042
     Dates: start: 20170905, end: 20180320
  3. CALCIUM FOLINAS [Suspect]
     Active Substance: LEUCOVORIN CALCIUM
     Indication: COLON CANCER
     Dosage: DOSE: 354; UNSPECIFIED UNITS
     Route: 042
     Dates: start: 20170905, end: 20180320

REACTIONS (1)
  - Neutropenia [Unknown]

NARRATIVE: CASE EVENT DATE: 20180403
